FAERS Safety Report 6081448-9 (Version None)
Quarter: 2009Q1

REPORT INFORMATION
  Report Type: 
  Country: None (occurrence: None)
  Receive Date: 20090213
  Receipt Date: 20090204
  Transmission Date: 20090719
  Serious: Yes (Hospitalization)
  Sender: FDA-Public Use
  Company Number: CIP09000324

PATIENT
  Age: 41 Year
  Sex: Female

DRUGS (2)
  1. ASACOL [Suspect]
     Indication: COLITIS ULCERATIVE
     Dosage: ORAL
     Route: 048
  2. AZATHIOPRINE [Suspect]
     Indication: COLITIS ULCERATIVE
     Dosage: 100 MG DAILY

REACTIONS (4)
  - CYTOMEGALOVIRUS ANTIGEN POSITIVE [None]
  - DRUG INTERACTION [None]
  - LEUKOPENIA [None]
  - PYREXIA [None]
